FAERS Safety Report 9233863 (Version 1)
Quarter: 2013Q2

REPORT INFORMATION
  Report Type: Spontaneous
  Country: US (occurrence: US)
  Receive Date: 20130416
  Receipt Date: 20130416
  Transmission Date: 20140414
  Serious: Yes (Hospitalization)
  Sender: FDA-Public Use
  Company Number: US-BAYER-2013-047500

PATIENT
  Age: 19 Year
  Sex: Female

DRUGS (3)
  1. YASMIN [Suspect]
     Indication: POLYCYSTIC OVARIES
     Dosage: 1 TABLET, DAILY
     Route: 048
  2. MOTRIN [Concomitant]
     Dosage: 800 MG, Q.6 HOURS P.R.N
     Route: 048
  3. LORTAB [Concomitant]
     Indication: PAIN
     Dosage: 5/500 1-2 P.O. Q.6 HOURS P.R.N

REACTIONS (1)
  - Pulmonary embolism [None]
